FAERS Safety Report 23291733 (Version 1)
Quarter: 2023Q4

REPORT INFORMATION
  Report Type: Other
  Country: MX (occurrence: None)
  Receive Date: 20231213
  Receipt Date: 20231213
  Transmission Date: 20240109
  Serious: Yes (Disabling)
  Sender: FDA-Public Use
  Company Number: MX-ROCHE-3472039

PATIENT
  Age: 45 Year
  Sex: Female
  Weight: 57 kg

DRUGS (2)
  1. OCREVUS [Suspect]
     Active Substance: OCRELIZUMAB
     Indication: Multiple sclerosis
     Dosage: SUBSEQUENT DOSE OF OCRELIZUMAB: 01/DEC/2023 600 MG
     Route: 042
     Dates: start: 20190811
  2. OCREVUS [Suspect]
     Active Substance: OCRELIZUMAB
     Route: 042
     Dates: start: 20210811

REACTIONS (9)
  - Vision blurred [Not Recovered/Not Resolved]
  - Hypotension [Unknown]
  - Periorbital swelling [Unknown]
  - Back pain [Unknown]
  - Headache [Unknown]
  - Swelling face [Unknown]
  - Throat irritation [Unknown]
  - Heart rate decreased [Unknown]
  - Psychomotor hyperactivity [Unknown]

NARRATIVE: CASE EVENT DATE: 20231201
